FAERS Safety Report 4402248-9 (Version None)
Quarter: 2004Q3

REPORT INFORMATION
  Report Type: 
  Country: None (occurrence: None)
  Receive Date: 20040716
  Receipt Date: 19990719
  Transmission Date: 20050211
  Serious: Yes (Hospitalization)
  Sender: FDA-Public Use
  Company Number: 02100-JPN-99-0110

PATIENT
  Age: 53 Year
  Sex: Female

DRUGS (5)
  1. CILOSTAZOL [Suspect]
     Dosage: 200 MG ORAL
     Route: 048
     Dates: start: 19990201
  2. ISOSORBIDE DINITRATE [Concomitant]
  3. NIFEDIPINE [Concomitant]
  4. ASPIRIN [Concomitant]
  5. TRIAZOLAM [Concomitant]

REACTIONS (3)
  - CONDITION AGGRAVATED [None]
  - INTERSTITIAL LUNG DISEASE [None]
  - PRODUCTIVE COUGH [None]
